FAERS Safety Report 9122127 (Version 1)
Quarter: 2013Q1

REPORT INFORMATION
  Report Type: Report from Study
  Country: NZ (occurrence: NZ)
  Receive Date: 20130114
  Receipt Date: 20130114
  Transmission Date: 20140127
  Serious: Yes (Hospitalization)
  Sender: FDA-Public Use
  Company Number: PHHY2013NZ002810

PATIENT
  Sex: Female

DRUGS (1)
  1. LEPONEX / CLOZARIL [Suspect]
     Dates: start: 19961111

REACTIONS (1)
  - Psychotic disorder [Unknown]
